FAERS Safety Report 10503814 (Version 2)
Quarter: 2014Q4

REPORT INFORMATION
  Report Type: Spontaneous
  Country: US (occurrence: US)
  Receive Date: 20141008
  Receipt Date: 20141119
  Transmission Date: 20150528
  Serious: No
  Sender: FDA-Public Use
  Company Number: US-PFIZER INC-2014272334

PATIENT
  Age: 71 Year
  Sex: Male

DRUGS (12)
  1. LYRICA [Interacting]
     Active Substance: PREGABALIN
     Dosage: UNK
     Dates: start: 2014, end: 201409
  2. PLAVIX [Interacting]
     Active Substance: CLOPIDOGREL BISULFATE
     Indication: DIABETES MELLITUS
     Dosage: 75 MG, DAILY (PER DAY)
     Dates: start: 2005
  3. BABY ASPIRIN [Concomitant]
     Active Substance: ASPIRIN
     Dosage: UNK
     Dates: start: 2005
  4. CARVEDILOL. [Interacting]
     Active Substance: CARVEDILOL
     Indication: DIABETES MELLITUS
     Dosage: 3.125 UNK, 2X/DAY
     Dates: start: 2005
  5. METFORMIN HCL [Interacting]
     Active Substance: METFORMIN HYDROCHLORIDE
     Indication: DIABETES MELLITUS
     Dosage: 850 MG, 3X/DAY
     Dates: start: 2005
  6. LYRICA [Suspect]
     Active Substance: PREGABALIN
     Indication: DIABETIC NEUROPATHY
     Dosage: 50 MG, 1X/DAY (1 AT BED)
     Dates: start: 2014, end: 2014
  7. ALTACE [Interacting]
     Active Substance: RAMIPRIL
     Indication: CARDIAC DISORDER
     Dosage: UNK
     Dates: start: 2005
  8. CENTRUM SILVER [Concomitant]
     Active Substance: VITAMINS
     Dosage: UNK
     Dates: start: 1998
  9. SIMVASTATIN. [Interacting]
     Active Substance: SIMVASTATIN
     Indication: DIABETES MELLITUS
     Dosage: 40 MG, 1X/DAY
     Dates: start: 2005
  10. RAMIPRIL. [Interacting]
     Active Substance: RAMIPRIL
     Indication: DIABETES MELLITUS
     Dosage: 10 MG, 1X/DAY
     Dates: start: 2005
  11. GLIMEPIRIDE. [Interacting]
     Active Substance: GLIMEPIRIDE
     Indication: DIABETES MELLITUS
     Dosage: 1 MG, UNK
     Dates: start: 2005
  12. ALTACE [Interacting]
     Active Substance: RAMIPRIL
     Indication: DIABETES MELLITUS

REACTIONS (1)
  - Drug interaction [Recovered/Resolved]
